FAERS Safety Report 19158093 (Version 2)
Quarter: 2021Q2

REPORT INFORMATION
  Report Type: Spontaneous
  Country: US (occurrence: US)
  Receive Date: 20210420
  Receipt Date: 20210512
  Transmission Date: 20210717
  Serious: Yes (Other)
  Sender: FDA-Public Use
  Company Number: US-PFIZER INC-2021238762

PATIENT
  Age: 62 Year
  Sex: Female

DRUGS (1)
  1. XELJANZ XR [Suspect]
     Active Substance: TOFACITINIB CITRATE
     Dosage: 11 MG
     Dates: start: 202101

REACTIONS (4)
  - Nausea [Not Recovered/Not Resolved]
  - Pain [Unknown]
  - Epigastric discomfort [Unknown]
  - Localised infection [Unknown]

NARRATIVE: CASE EVENT DATE: 20210322
